FAERS Safety Report 7142089-5 (Version None)
Quarter: 2010Q4

REPORT INFORMATION
  Report Type: 
  Country: None (occurrence: None)
  Receive Date: 20101207
  Receipt Date: 20101202
  Transmission Date: 20110411
  Serious: Yes (Hospitalization, Other)
  Sender: FDA-Public Use
  Company Number: US-PFIZER INC-2009315009

PATIENT
  Sex: Male
  Weight: 96 kg

DRUGS (5)
  1. PF-04383119 [Suspect]
     Indication: OSTEOARTHRITIS
     Dosage: Q 8 WEEKS
     Route: 042
     Dates: start: 20091123, end: 20100510
  2. ADVIL [Suspect]
     Dosage: 400 MG, EVERY 4 HRS
     Route: 048
     Dates: start: 20091211, end: 20091226
  3. ZOCOR [Concomitant]
     Dosage: UNK
     Route: 048
     Dates: start: 20070126
  4. ALDACTAZIDE [Concomitant]
     Dosage: UNK
     Route: 048
     Dates: start: 20051011
  5. NYQUIL [Concomitant]
     Dosage: UNK
     Route: 048
     Dates: start: 20091218

REACTIONS (6)
  - BLOOD GLUCOSE INCREASED [None]
  - BLOOD UREA INCREASED [None]
  - GASTRIC ULCER [None]
  - HAEMORRHAGE [None]
  - UPPER GASTROINTESTINAL HAEMORRHAGE [None]
  - WHITE BLOOD CELL COUNT INCREASED [None]
